FAERS Safety Report 11202451 (Version 1)
Quarter: 2015Q2

REPORT INFORMATION
  Report Type: Spontaneous
  Country: FR (occurrence: FR)
  Receive Date: 20150619
  Receipt Date: 20150619
  Transmission Date: 20150821
  Serious: Yes (Hospitalization)
  Sender: FDA-Public Use
  Company Number: FR-SA-2015SA083505

PATIENT
  Age: 72 Year
  Sex: Male

DRUGS (5)
  1. ARAVA [Suspect]
     Active Substance: LEFLUNOMIDE
     Route: 048
     Dates: start: 201001, end: 20141210
  2. RIFAMPICIN [Concomitant]
     Active Substance: RIFAMPIN
  3. LOVENOX [Concomitant]
     Active Substance: ENOXAPARIN SODIUM
  4. CORTANCYL [Suspect]
     Active Substance: PREDNISONE
     Route: 065
  5. CIFLOX [Concomitant]
     Active Substance: CIPROFLOXACIN

REACTIONS (2)
  - Nodule [Recovering/Resolving]
  - Osteoarthritis [Recovering/Resolving]
